FAERS Safety Report 17326460 (Version 1)
Quarter: 2020Q1

REPORT INFORMATION
  Report Type: Spontaneous
  Country: DK (occurrence: DK)
  Receive Date: 20200127
  Receipt Date: 20200127
  Transmission Date: 20200409
  Serious: Yes (Death, Hospitalization)
  Sender: FDA-Public Use
  Company Number: DK-009507513-2001DNK007223

PATIENT
  Age: 81 Year
  Sex: Male

DRUGS (5)
  1. KEYTRUDA [Suspect]
     Active Substance: PEMBROLIZUMAB
     Indication: METASTATIC MALIGNANT MELANOMA
     Dosage: 175 MILLIGRAM, STRENGTH: UNKNOWN, FORMULATION: UNKNOWN
     Route: 042
     Dates: start: 20190829, end: 20190919
  2. RAMIPRIL. [Concomitant]
     Active Substance: RAMIPRIL
     Indication: HYPERTENSION
     Dosage: 10 MILLIGRAM, QD, UNKNOWN START DATE, BUT AT LEAST FROM 29-MAY-2017
     Route: 048
     Dates: start: 20170529
  3. WARFARIN ORION [Concomitant]
     Active Substance: WARFARIN
     Indication: THROMBOSIS PROPHYLAXIS
     Dosage: UNKNOWN START DATE, BUT AT LEAST FROM 15-DEC-2017. DOSE: UNKNOWN
     Route: 048
     Dates: start: 20171215
  4. FLUOXETINE [Concomitant]
     Active Substance: FLUOXETINE HYDROCHLORIDE
     Indication: DEPRESSION
     Dosage: 20 MILLIGRAM, QD
     Route: 048
     Dates: start: 20151117
  5. INDAPAMIDE. [Concomitant]
     Active Substance: INDAPAMIDE
     Indication: HYPERTENSION
     Dosage: 1.5 MILLIGRAM, QD, UNKNOWN START DATE, BUT AT LEAST FROM 29-MAY-2017
     Route: 048
     Dates: start: 20170529

REACTIONS (2)
  - Pneumonitis [Fatal]
  - Respiratory failure [Fatal]

NARRATIVE: CASE EVENT DATE: 201909
